FAERS Safety Report 13769681 (Version 1)
Quarter: 2017Q3

REPORT INFORMATION
  Report Type: Spontaneous
  Country: GB (occurrence: GB)
  Receive Date: 20170719
  Receipt Date: 20170719
  Transmission Date: 20171127
  Serious: Yes (Other)
  Sender: FDA-Public Use
  Company Number: GB-PFIZER INC-2792335

PATIENT
  Age: 40 Year
  Sex: Male
  Weight: 116 kg

DRUGS (14)
  1. AVEENO [Concomitant]
     Active Substance: DIMETHICONE\HOMOSALATE\OCTINOXATE\OCTISALATE\TITANIUM DIOXIDE
     Indication: PSORIASIS
     Dosage: 1 DF, MASSAGE INTO PSORIATIC PLAQUES WHEN WASHING, FREQ: 2 DAY; INTERVAL: 1
     Dates: start: 20140416
  2. LANSOPRAZOLE. [Concomitant]
     Active Substance: LANSOPRAZOLE
     Indication: PRODUCT USED FOR UNKNOWN INDICATION
     Dosage: 1 DF, FREQ: 1 DAY; INTERVAL: 1
     Dates: start: 20141203, end: 20150129
  3. NAPROXEN. [Concomitant]
     Active Substance: NAPROXEN
     Dosage: 1 DF, WITH FOOD AND PROTON PUMP INHIBITOR, FREQ: 2 DAY; INTERVAL: 1
     Dates: start: 20141203, end: 20150121
  4. NEFOPAM [Concomitant]
     Active Substance: NEFOPAM
     Indication: PRODUCT USED FOR UNKNOWN INDICATION
     Dosage: 2 DF, FREQ:3 DAY; INTERVAL: 1
     Dates: start: 20141203, end: 20141208
  5. METHOTREXATE SODIUM. [Suspect]
     Active Substance: METHOTREXATE SODIUM
     Indication: PRODUCT USED FOR UNKNOWN INDICATION
     Dosage: 4 DF, TO BE TAKEN FOR TWO WEEKS, FREQ: 1 WEEK; INTERVAL: 1
     Dates: start: 20150107
  6. COAL TAR. [Concomitant]
     Active Substance: COAL TAR
     Indication: PRODUCT USED FOR UNKNOWN INDICATION
     Dosage: AS NECESSARY
     Dates: start: 20140924
  7. PARACETAMOL [Concomitant]
     Active Substance: ACETAMINOPHEN
     Indication: PAIN
     Dosage: TAKE 1OR 2, FREQ:4 DAY; INTERVAL: 1
     Dates: start: 20141208
  8. COCODAMOL [Concomitant]
     Active Substance: ACETAMINOPHEN\CODEINE PHOSPHATE
     Indication: PRODUCT USED FOR UNKNOWN INDICATION
     Dosage: TAKE 1OR 2, FREQ: 4 DAY; INTERVAL: 1
     Dates: start: 20141224, end: 20150121
  9. SOYA OIL [Concomitant]
     Active Substance: SOYBEAN OIL
     Indication: PSORIASIS
     Dosage: USE FOR BATH TREATMENT OF PSORIASIS
     Dates: start: 20140910
  10. BETAMETHASONE VALERATE. [Concomitant]
     Active Substance: BETAMETHASONE VALERATE
     Indication: PRODUCT USED FOR UNKNOWN INDICATION
     Dosage: UNK
     Dates: start: 20141203, end: 20141210
  11. CALCIPOTRIOL [Concomitant]
     Active Substance: CALCIPOTRIENE
     Indication: PRODUCT USED FOR UNKNOWN INDICATION
     Dosage: 1 DF, APPLY ONCE DAILY TO AFFECTED AREAS NOT TO FACE, FREQ: 1 DAY; INTERVAL: 1
     Dates: start: 20131105
  12. METHOCARBAMOL. [Concomitant]
     Active Substance: METHOCARBAMOL
     Indication: SCIATICA
     Dosage: 2 DF, UNK
     Dates: start: 20141208
  13. CHLORHEXIDINE GLUCONATE. [Concomitant]
     Active Substance: CHLORHEXIDINE GLUCONATE
     Indication: PRODUCT USED FOR UNKNOWN INDICATION
     Dosage: USE AS DIRECTED
     Dates: start: 20140924
  14. LYMECYCLINE [Concomitant]
     Active Substance: LYMECYCLINE
     Indication: PRODUCT USED FOR UNKNOWN INDICATION
     Dosage: 1 DF, FREQ:1 DAY; INTERVAL: 1
     Dates: start: 20140305, end: 20141203

REACTIONS (1)
  - Serum procollagen type III N-terminal propeptide increased [Unknown]

NARRATIVE: CASE EVENT DATE: 20150227
